FAERS Safety Report 9475169 (Version 1)
Quarter: 2013Q3

REPORT INFORMATION
  Report Type: Spontaneous
  Country: CN (occurrence: CN)
  Receive Date: 20130824
  Receipt Date: 20130824
  Transmission Date: 20140515
  Serious: Yes (Hospitalization)
  Sender: FDA-Public Use
  Company Number: PHHY2013CN090829

PATIENT
  Age: 13 Year
  Sex: Female

DRUGS (3)
  1. ALLOPURINOL [Suspect]
     Indication: HYPERURICAEMIA
  2. KETOTIFEN [Concomitant]
  3. GLUTATHIONE [Concomitant]

REACTIONS (7)
  - Drug reaction with eosinophilia and systemic symptoms [Recovered/Resolved]
  - Pruritus [Recovered/Resolved]
  - Erythema [Recovered/Resolved]
  - Pyrexia [Recovered/Resolved]
  - Kidney enlargement [Recovered/Resolved]
  - Hepatomegaly [Recovered/Resolved]
  - Retroperitoneal lymphadenopathy [Recovered/Resolved]
